FAERS Safety Report 5230058-1 (Version None)
Quarter: 2007Q1

REPORT INFORMATION
  Report Type: 
  Country: None (occurrence: None)
  Receive Date: 20070206
  Receipt Date: 20061010
  Transmission Date: 20070707
  Serious: Yes (Other)
  Sender: FDA-Public Use
  Company Number: US-GLAXOSMITHKLINE-A0623096A

PATIENT
  Age: 66 Year
  Sex: Female

DRUGS (2)
  1. PAROXETINE HCL [Suspect]
     Dosage: 10MG PER DAY
     Route: 048
     Dates: start: 20051015
  2. ATENOLOL [Concomitant]

REACTIONS (6)
  - GOITRE [None]
  - HYPERTHYROIDISM [None]
  - PALPITATIONS [None]
  - RESTLESSNESS [None]
  - SLEEP DISORDER [None]
  - WEIGHT DECREASED [None]
